FAERS Safety Report 12321680 (Version 1)
Quarter: 2016Q2

REPORT INFORMATION
  Report Type: Spontaneous
  Country: US (occurrence: US)
  Receive Date: 20160502
  Receipt Date: 20160502
  Transmission Date: 20160815
  Serious: No
  Sender: FDA-Public Use
  Company Number: US-SUN PHARMACEUTICAL INDUSTRIES LTD-2016US-112798

PATIENT
  Sex: Female

DRUGS (1)
  1. METHYLPHENIDATE. [Suspect]
     Active Substance: METHYLPHENIDATE
     Indication: PRODUCT USED FOR UNKNOWN INDICATION
     Dosage: UNK UNK, TID
     Route: 065

REACTIONS (7)
  - Decreased activity [Unknown]
  - Sweat gland disorder [Unknown]
  - Drug ineffective [Unknown]
  - Job dissatisfaction [Unknown]
  - Feeling abnormal [Unknown]
  - Cardiac disorder [Unknown]
  - Temperature regulation disorder [Unknown]
